FAERS Safety Report 8030406-3 (Version None)
Quarter: 2012Q1

REPORT INFORMATION
  Report Type: 
  Country: None (occurrence: None)
  Receive Date: 20120109
  Receipt Date: 20120109
  Transmission Date: 20120608
  Serious: Yes (Hospitalization)
  Sender: FDA-Public Use
  Company Number: IT-SANOFI-AVENTIS-2012SA001246

PATIENT
  Age: 74 Year
  Sex: Male

DRUGS (10)
  1. SOTALOL HCL [Concomitant]
     Route: 065
  2. ZOLOFT [Concomitant]
     Dosage: DOSE:0.5 UNIT(S)
     Route: 065
  3. SIMVASTATIN [Concomitant]
     Dosage: DOSE:1 UNIT(S)
     Route: 065
  4. NAPRILENE [Concomitant]
     Route: 048
  5. RIOPAN [Concomitant]
     Route: 065
  6. PLAVIX [Suspect]
     Dosage: DOSE:1 UNIT(S)
     Route: 048
     Dates: start: 20110301, end: 20111213
  7. COLECALCIFEROL [Concomitant]
     Route: 065
  8. ASPIRIN [Suspect]
     Dosage: DOSE:1 UNIT(S)
     Route: 048
     Dates: start: 20110301, end: 20111213
  9. PANTOPRAZOLE [Concomitant]
     Route: 065
  10. LEVOPRAID [Concomitant]
     Route: 065

REACTIONS (2)
  - ANAEMIA [None]
  - DIVERTICULITIS INTESTINAL HAEMORRHAGIC [None]
